FAERS Safety Report 9040792 (Version 1)
Quarter: 2013Q1

REPORT INFORMATION
  Report Type: Report from Study
  Country: US (occurrence: US)
  Receive Date: 20130129
  Receipt Date: 20130129
  Transmission Date: 20140127
  Serious: Yes (Other)
  Sender: FDA-Public Use
  Company Number: US-ABBOTT-13P-163-1038514-00

PATIENT
  Age: 40 Year
  Sex: Male
  Weight: 136.2 kg

DRUGS (2)
  1. HUMIRA [Suspect]
     Indication: PSORIASIS
     Route: 058
     Dates: end: 201212
  2. HUMIRA [Suspect]
     Dates: start: 201301

REACTIONS (3)
  - Rotator cuff syndrome [Recovered/Resolved]
  - Fall [Recovering/Resolving]
  - Musculoskeletal pain [Recovered/Resolved]
